FAERS Safety Report 10955569 (Version 3)
Quarter: 2015Q2

REPORT INFORMATION
  Report Type: Spontaneous
  Country: ZA (occurrence: ZA)
  Receive Date: 20150326
  Receipt Date: 20150609
  Transmission Date: 20150821
  Serious: Yes (Hospitalization, Other)
  Sender: FDA-Public Use
  Company Number: ZA-ASTRAZENECA-2015SE27254

PATIENT
  Age: 1462 Day
  Sex: Male

DRUGS (3)
  1. PULMICORT TURBUHALER [Concomitant]
     Active Substance: BUDESONIDE
     Route: 055
  2. NEXIAM [Suspect]
     Active Substance: ESOMEPRAZOLE
     Indication: GASTROOESOPHAGEAL REFLUX DISEASE
     Route: 048
     Dates: start: 201502
  3. NEXIAM [Suspect]
     Active Substance: ESOMEPRAZOLE
     Indication: SLEEP APNOEA SYNDROME
     Route: 048
     Dates: start: 201502

REACTIONS (3)
  - Primary immunodeficiency syndrome [Unknown]
  - Apnoea [Recovered/Resolved]
  - Laryngospasm [Recovered/Resolved]

NARRATIVE: CASE EVENT DATE: 20150318
